FAERS Safety Report 5359513-0 (Version None)
Quarter: 2007Q2

REPORT INFORMATION
  Report Type: 
  Country: None (occurrence: None)
  Receive Date: 20070615
  Receipt Date: 20070607
  Transmission Date: 20071010
  Serious: Yes (Hospitalization)
  Sender: FDA-Public Use
  Company Number: US-GENENTECH-239854

PATIENT
  Sex: Female
  Weight: 71 kg

DRUGS (3)
  1. BEVACIZUMAB [Suspect]
     Indication: BLADDER CANCER
     Dosage: 15 MG, Q3W
     Route: 041
     Dates: start: 20061128
  2. CISPLATIN [Suspect]
     Indication: BLADDER CANCER
     Dosage: 50 MG, Q3W
     Route: 041
     Dates: start: 20061128
  3. GEMCITABINE [Suspect]
     Indication: BLADDER CANCER
     Dosage: 800 MG, DAY1+8/Q3W
     Route: 041
     Dates: start: 20061108

REACTIONS (2)
  - ENCEPHALOPATHY [None]
  - URINARY TRACT INFECTION [None]
